FAERS Safety Report 22661111 (Version 1)
Quarter: 2023Q2

REPORT INFORMATION
  Report Type: Report from Study
  Country: US (occurrence: US)
  Receive Date: 20230630
  Receipt Date: 20230630
  Transmission Date: 20230722
  Serious: Yes (Hospitalization)
  Sender: FDA-Public Use
  Company Number: US-JAZZ PHARMACEUTICALS-2023-US-011860

PATIENT
  Age: 14 Year
  Sex: Female

DRUGS (1)
  1. EPIDIOLEX [Suspect]
     Active Substance: CANNABIDIOL
     Indication: Lennox-Gastaut syndrome
     Dosage: 2.8 MILLILITER, BID
     Route: 048
     Dates: start: 202211

REACTIONS (1)
  - Diaphragmatic hernia [Unknown]

NARRATIVE: CASE EVENT DATE: 20230512
